FAERS Safety Report 20900670 (Version 1)
Quarter: 2022Q2

REPORT INFORMATION
  Report Type: Report from Study
  Country: IT (occurrence: IT)
  Receive Date: 20220601
  Receipt Date: 20220601
  Transmission Date: 20220721
  Serious: Yes (Hospitalization)
  Sender: FDA-Public Use
  Company Number: None

PATIENT
  Age: 18 Year
  Sex: Male
  Weight: 72 kg

DRUGS (3)
  1. VINCRISTINE [Suspect]
     Active Substance: VINCRISTINE
     Dosage: UNIT DOSE : 2 MG , FREQUENCY TIME : 1 CYCLICAL
     Route: 042
     Dates: start: 20220204, end: 20220204
  2. IFOSFAMIDE [Suspect]
     Active Substance: IFOSFAMIDE
     Indication: Ewing^s sarcoma
     Dosage: UNIT DOSE : 5540 MG , DURATION : 2 DAYS , FREQUENCY TIME : 1 DAY
     Route: 040
     Dates: start: 20220224, end: 20220226
  3. ETOPOSIDE [Concomitant]
     Active Substance: ETOPOSIDE
     Indication: Ewing^s sarcoma
     Dosage: UNIT DOSE : 277 MG , DURATION : 2 DAYS , STRENGTH : 20 MG/ML
     Route: 040
     Dates: start: 20220224, end: 20220226

REACTIONS (4)
  - Proctalgia [Recovered/Resolved]
  - Anal fissure [Recovered/Resolved]
  - Febrile neutropenia [Recovered/Resolved]
  - Haemorrhoids [Recovered/Resolved]

NARRATIVE: CASE EVENT DATE: 20220309
